FAERS Safety Report 18760113 (Version 1)
Quarter: 2021Q1

REPORT INFORMATION
  Report Type: Spontaneous
  Country: US (occurrence: US)
  Receive Date: 20210120
  Receipt Date: 20210120
  Transmission Date: 20210419
  Serious: Yes (Other)
  Sender: FDA-Public Use
  Company Number: US-CIPLA LTD.-2021US00214

PATIENT

DRUGS (1)
  1. HYDROXYZINE [Suspect]
     Active Substance: HYDROXYZINE HYDROCHLORIDE
     Indication: PRURITUS
     Dosage: 25 MILLIGRAM, TID (THREE TIMES DAILY)
     Route: 065

REACTIONS (3)
  - Concomitant disease aggravated [Recovering/Resolving]
  - Amnesia [Recovering/Resolving]
  - Vascular dementia [Recovering/Resolving]
